FAERS Safety Report 10004899 (Version 3)
Quarter: 2014Q4

REPORT INFORMATION
  Report Type: Spontaneous
  Country: US (occurrence: US)
  Receive Date: 20140312
  Receipt Date: 20141118
  Transmission Date: 20150528
  Serious: Yes (Hospitalization, Other)
  Sender: FDA-Public Use
  Company Number: US-BAYER-2014-035308

PATIENT
  Age: 22 Year
  Sex: Female
  Weight: 70.75 kg

DRUGS (13)
  1. NAPROXEN. [Concomitant]
     Active Substance: NAPROXEN
     Indication: BACK PAIN
  2. YAZ [Suspect]
     Active Substance: DROSPIRENONE\ETHINYL ESTRADIOL
     Indication: CONTRACEPTION
     Dosage: UNK
     Route: 048
     Dates: start: 2007, end: 2011
  3. LEVOTHYROXIN [Concomitant]
     Active Substance: LEVOTHYROXINE
     Dosage: 88 MCG/24HR, UNK
  4. YAZ [Suspect]
     Active Substance: DROSPIRENONE\ETHINYL ESTRADIOL
     Indication: CONTRACEPTION
     Dosage: UNK
     Route: 048
     Dates: start: 2007, end: 2011
  5. NAPROXEN. [Concomitant]
     Active Substance: NAPROXEN
     Indication: MIGRAINE
     Dosage: 500 MG, 1 EVERY 8 HOURS PRN
     Route: 048
  6. ACETAMINOPHEN W/OXYCODONE [Concomitant]
     Active Substance: ACETAMINOPHEN\OXYCODONE HYDROCHLORIDE
  7. SYNTHROID [Concomitant]
     Active Substance: LEVOTHYROXINE SODIUM
     Indication: HYPOTHYROIDISM
     Dosage: 88 ?G, UNK
     Dates: start: 2008
  8. BACTRIM DS [Concomitant]
     Active Substance: SULFAMETHOXAZOLE\TRIMETHOPRIM
     Dosage: 800-160 MG, 1 TWICE DAILY
     Route: 048
  9. PERCOCET [Concomitant]
     Active Substance: ACETAMINOPHEN\OXYCODONE HYDROCHLORIDE
     Dosage: 5/325 EVERY 4 HOURS AS NEEDED
     Route: 048
  10. KEPPRA [Concomitant]
     Active Substance: LEVETIRACETAM
     Indication: SEIZURE
  11. ADVIL [IBUPROFEN] [Concomitant]
     Active Substance: IBUPROFEN
     Indication: MIGRAINE
     Dosage: AS NEEDED
     Dates: start: 201111
  12. LEVETIRACETAM. [Concomitant]
     Active Substance: LEVETIRACETAM
  13. YAZ [Suspect]
     Active Substance: DROSPIRENONE\ETHINYL ESTRADIOL
     Indication: CONTRACEPTION
     Dosage: UNK
     Route: 048
     Dates: start: 2007, end: 2011

REACTIONS (26)
  - Cerebral thrombosis [Recovered/Resolved]
  - Loss of consciousness [Recovered/Resolved]
  - Gait disturbance [Recovered/Resolved]
  - Agraphia [Recovered/Resolved]
  - Fear [None]
  - Migraine [Recovered/Resolved]
  - Abdominal pain [None]
  - Back pain [None]
  - Activities of daily living impaired [Recovered/Resolved]
  - Paralysis [None]
  - Seizure [Recovered/Resolved]
  - Frustration [None]
  - Pain [Recovered/Resolved]
  - Speech disorder [Recovered/Resolved]
  - Injury [Recovered/Resolved]
  - General physical health deterioration [Recovered/Resolved]
  - Amnesia [Recovered/Resolved]
  - Scar [None]
  - Stress [None]
  - Impaired driving ability [Recovered/Resolved]
  - Intracranial venous sinus thrombosis [Recovered/Resolved]
  - Motor dysfunction [Recovered/Resolved]
  - Weight increased [None]
  - Malaise [Recovered/Resolved]
  - Nausea [Recovered/Resolved]
  - Hypothyroidism [None]

NARRATIVE: CASE EVENT DATE: 201110
